FAERS Safety Report 4338295-5 (Version None)
Quarter: 2004Q2

REPORT INFORMATION
  Report Type: 
  Country: None (occurrence: None)
  Receive Date: 20040413
  Receipt Date: 20040413
  Transmission Date: 20050107
  Serious: No
  Sender: FDA-Public Use
  Company Number: None

PATIENT
  Age: 31 Year
  Sex: Male
  Weight: 117.9352 kg

DRUGS (1)
  1. DURAGESIC [Suspect]

REACTIONS (1)
  - MALAISE [None]
